FAERS Safety Report 5041460-5 (Version None)
Quarter: 2006Q2

REPORT INFORMATION
  Report Type: 
  Country: None (occurrence: None)
  Receive Date: 20060627
  Receipt Date: 20060614
  Transmission Date: 20061013
  Serious: Yes (Other)
  Sender: FDA-Public Use
  Company Number: 226306

PATIENT
  Age: 40 Year
  Sex: Female

DRUGS (5)
  1. XOLAIR [Suspect]
     Indication: ASTHMA
     Dosage: 150 MG, 1/MONTH
     Dates: start: 20060412
  2. PROVENTIL (ALBUTEROL/ALBUTEROL SULFATE) [Concomitant]
  3. ADVAIR DISKUS 100/50 [Concomitant]
  4. ALLEGRA-D (FEXOFENADINE HYDROCHLORIDE, PSEUDOEPHEDRINE HYDROCHLORIDE) [Concomitant]
  5. PREVACID [Concomitant]

REACTIONS (5)
  - KIDNEY INFECTION [None]
  - NAUSEA [None]
  - PYELONEPHRITIS [None]
  - RED BLOOD CELL COUNT INCREASED [None]
  - VOMITING [None]
